FAERS Safety Report 24706843 (Version 3)
Quarter: 2025Q1

REPORT INFORMATION
  Report Type: Report from Study
  Country: AR (occurrence: AR)
  Receive Date: 20241206
  Receipt Date: 20250122
  Transmission Date: 20250408
  Serious: Yes (Death, Hospitalization, Other)
  Sender: AMGEN
  Company Number: AR-AMGEN-ARGSL2024238573

PATIENT
  Age: 62 Year
  Sex: Male

DRUGS (1)
  1. VECTIBIX [Suspect]
     Active Substance: PANITUMUMAB
     Indication: Colorectal cancer
     Route: 065
     Dates: start: 20241028

REACTIONS (5)
  - Death [Fatal]
  - Malaise [Unknown]
  - Dehydration [Unknown]
  - Asthenia [Unknown]
  - Underweight [Unknown]

NARRATIVE: CASE EVENT DATE: 20240101
